FAERS Safety Report 9217930 (Version 1)
Quarter: 2013Q2

REPORT INFORMATION
  Report Type: Spontaneous
  Country: CA (occurrence: CA)
  Receive Date: 20130408
  Receipt Date: 20130408
  Transmission Date: 20140414
  Serious: Yes (Other)
  Sender: FDA-Public Use
  Company Number: CA-PFIZER INC-2013104250

PATIENT
  Age: 55 Year
  Sex: Female

DRUGS (7)
  1. BEXTRA [Suspect]
     Indication: PAIN
     Dosage: 20 MG, 1X/DAY
     Dates: start: 2004
  2. PLAQUENIL [Suspect]
     Dosage: 400 MG, 1X/DAY
  3. PREMARIN [Concomitant]
     Dosage: UNK
  4. ACETYLSALICYLIC ACID [Concomitant]
     Dosage: UNK
  5. SYNTHROID [Concomitant]
     Dosage: UNK
  6. VITAMIN B6 [Concomitant]
     Dosage: UNK
  7. MULTIVITAMINS [Concomitant]
     Dosage: UNK

REACTIONS (1)
  - Rash papular [Recovering/Resolving]
